FAERS Safety Report 25197843 (Version 2)
Quarter: 2025Q2

REPORT INFORMATION
  Report Type: Spontaneous
  Country: GB (occurrence: GB)
  Receive Date: 20250415
  Receipt Date: 20250513
  Transmission Date: 20250716
  Serious: Yes (Hospitalization, Other)
  Sender: MYLAN
  Company Number: GB-MYLANLABS-2025M1031517

PATIENT
  Sex: Male

DRUGS (4)
  1. CLOZARIL [Suspect]
     Active Substance: CLOZAPINE
     Indication: Schizophrenia
  2. CLOZARIL [Suspect]
     Active Substance: CLOZAPINE
     Route: 048
  3. CLOZARIL [Suspect]
     Active Substance: CLOZAPINE
     Route: 048
  4. CLOZARIL [Suspect]
     Active Substance: CLOZAPINE

REACTIONS (3)
  - Schizophrenia [Unknown]
  - Suicide attempt [Unknown]
  - Overdose [Unknown]

NARRATIVE: CASE EVENT DATE: 20250401
